FAERS Safety Report 21551585 (Version 3)
Quarter: 2022Q4

REPORT INFORMATION
  Report Type: Spontaneous
  Country: US (occurrence: US)
  Receive Date: 20221104
  Receipt Date: 20221202
  Transmission Date: 20230112
  Serious: Yes (Hospitalization, Other)
  Sender: FDA-Public Use
  Company Number: US-MALLINCKRODT-T202205184

PATIENT
  Sex: Female
  Weight: 91 kg

DRUGS (1)
  1. H.P. ACTHAR [Suspect]
     Active Substance: CORTICOTROPIN
     Indication: Sarcoidosis
     Dosage: 0.5 MILLILITER (40 UNITS), BIW
     Route: 058
     Dates: start: 202208, end: 2022

REACTIONS (3)
  - Procedural intestinal perforation [Not Recovered/Not Resolved]
  - Surgery [Unknown]
  - Blood potassium decreased [Unknown]

NARRATIVE: CASE EVENT DATE: 20220101
